FAERS Safety Report 24549127 (Version 3)
Quarter: 2024Q4

REPORT INFORMATION
  Report Type: Spontaneous
  Country: PT (occurrence: PT)
  Receive Date: 20241025
  Receipt Date: 20241218
  Transmission Date: 20250115
  Serious: Yes (Hospitalization, Disabling, Other)
  Sender: PFIZER
  Company Number: None

PATIENT
  Age: 55 Year
  Sex: Female
  Weight: 75 kg

DRUGS (2)
  1. METHOTREXATE SODIUM [Suspect]
     Active Substance: METHOTREXATE SODIUM
     Indication: Central nervous system lupus
     Dosage: 15 MG, WEEKLY (6 TABLETS WEEKLY)
     Route: 048
     Dates: start: 20220115, end: 20240328
  2. METHOTREXATE SODIUM [Suspect]
     Active Substance: METHOTREXATE SODIUM
     Indication: Lupus vulgaris

REACTIONS (3)
  - Seizure [Recovered/Resolved]
  - Amnesia [Recovered/Resolved with Sequelae]
  - Off label use [Unknown]

NARRATIVE: CASE EVENT DATE: 20220115
